FAERS Safety Report 5200995-2 (Version None)
Quarter: 2007Q1

REPORT INFORMATION
  Report Type: 
  Country: None (occurrence: None)
  Receive Date: 20070108
  Receipt Date: 20061226
  Transmission Date: 20070707
  Serious: Yes (Other)
  Sender: FDA-Public Use
  Company Number: FR-GLAXOSMITHKLINE-B0131277A

PATIENT
  Sex: Female

DRUGS (9)
  1. ZIDOVUDINE [Suspect]
     Indication: HUMAN IMMUNODEFICIENCY VIRUS TRANSMISSION
     Route: 048
     Dates: start: 19980119, end: 19980302
  2. LAMIVUDINE [Suspect]
     Indication: HUMAN IMMUNODEFICIENCY VIRUS TRANSMISSION
     Route: 048
     Dates: start: 19980119, end: 19980302
  3. ZIDOVUDINE [Suspect]
     Dosage: 250MG PER DAY
     Route: 048
     Dates: start: 19970701
  4. LAMIVUDINE [Suspect]
     Dosage: 150MG TWICE PER DAY
     Route: 048
     Dates: start: 19971112
  5. INDINIVIR SULFATE [Suspect]
     Indication: HIV INFECTION
     Route: 048
     Dates: start: 19970529, end: 19970701
  6. DIDANOSINE [Suspect]
     Indication: HIV INFECTION
     Dosage: 150MG PER DAY
     Route: 048
     Dates: start: 19970529, end: 19970701
  7. SAQUINAVIR [Suspect]
     Indication: HUMAN IMMUNODEFICIENCY VIRUS TRANSMISSION
     Route: 048
     Dates: start: 19971112
  8. STAVUDINE [Suspect]
     Indication: HIV INFECTION
     Dosage: 300MGD PER DAY
     Route: 048
     Dates: start: 19970529, end: 19970701
  9. ZIDOVUDINE [Suspect]
     Indication: ANTIVIRAL PROPHYLAXIS
     Route: 042
     Dates: start: 20010119, end: 20010119

REACTIONS (7)
  - ANAEMIA MACROCYTIC [None]
  - DRUG EXPOSURE DURING PREGNANCY [None]
  - FOETAL GROWTH RETARDATION [None]
  - NEUTROPENIA [None]
  - NORMAL NEWBORN [None]
  - NUCLEAR MAGNETIC RESONANCE IMAGING ABNORMAL [None]
  - RHINITIS [None]
